FAERS Safety Report 25351888 (Version 1)
Quarter: 2025Q2

REPORT INFORMATION
  Report Type: Spontaneous
  Country: FR (occurrence: FR)
  Receive Date: 20250523
  Receipt Date: 20250523
  Transmission Date: 20250716
  Serious: Yes (Other)
  Sender: CHEPLAPHARM
  Company Number: None

PATIENT
  Age: 43 Year
  Sex: Male

DRUGS (4)
  1. CLONAZEPAM [Suspect]
     Active Substance: CLONAZEPAM
  2. METHADONE [Suspect]
     Active Substance: METHADONE HYDROCHLORIDE
     Indication: Overdose
     Dosage: PRESCRIBED BUT OVERDOSE UNKNOWN?DAILY DOSE: 40 MILLIGRAM
  3. PREGABALIN [Suspect]
     Active Substance: PREGABALIN
  4. COCAINE [Suspect]
     Active Substance: COCAINE

REACTIONS (5)
  - Respiratory distress [Unknown]
  - Coma [Recovered/Resolved]
  - Drug abuse [Not Recovered/Not Resolved]
  - Tachycardia [Unknown]
  - Toxicity to various agents [Recovered/Resolved]

NARRATIVE: CASE EVENT DATE: 20250408
